FAERS Safety Report 5314194-7 (Version None)
Quarter: 2007Q2

REPORT INFORMATION
  Report Type: 
  Country: None (occurrence: None)
  Receive Date: 20070501
  Receipt Date: 20070419
  Transmission Date: 20071010
  Serious: Yes (Life-Threatening, Hospitalization, Other)
  Sender: FDA-Public Use
  Company Number: US-MERCK-0704USA02316

PATIENT
  Age: 64 Year
  Sex: Female
  Weight: 75 kg

DRUGS (12)
  1. JANUVIA [Suspect]
     Indication: DIABETES MELLITUS NON-INSULIN-DEPENDENT
     Route: 048
     Dates: start: 20070309, end: 20070323
  2. GLUCOPHAGE [Concomitant]
     Indication: DIABETES MELLITUS NON-INSULIN-DEPENDENT
     Route: 048
  3. VERAPAMIL ER [Concomitant]
     Indication: HYPERTENSION
     Route: 048
  4. LISINOPRIL [Concomitant]
     Route: 048
  5. PRAVASTATIN SODIUM [Concomitant]
     Route: 048
  6. AFRIN [Concomitant]
  7. ASPIRIN [Concomitant]
     Route: 048
  8. VITAMIN B (UNSPECIFIED) [Concomitant]
     Route: 048
  9. MOBIC [Concomitant]
     Route: 048
  10. AMARYL [Concomitant]
     Indication: DIABETES MELLITUS NON-INSULIN-DEPENDENT
     Route: 048
     Dates: start: 20070309
  11. CORICIDIN (OLD FORMULA) [Concomitant]
     Route: 048
  12. VITAMIN SOURCE GLUCOSAMINE CHONDROITIN MSM [Concomitant]
     Route: 048

REACTIONS (9)
  - ANAEMIA [None]
  - CONCUSSION [None]
  - DEHYDRATION [None]
  - HYPOCALCAEMIA [None]
  - PNEUMONIA ASPIRATION [None]
  - SKIN LACERATION [None]
  - SYNCOPE [None]
  - THYROID NEOPLASM [None]
  - UPPER RESPIRATORY TRACT INFECTION [None]
